FAERS Safety Report 10875354 (Version 3)
Quarter: 2015Q2

REPORT INFORMATION
  Report Type: Spontaneous
  Country: JP (occurrence: JP)
  Receive Date: 20150227
  Receipt Date: 20150408
  Transmission Date: 20150821
  Serious: Yes (Hospitalization, Other)
  Sender: FDA-Public Use
  Company Number: PHHY2015JP001995

PATIENT
  Age: 4 Month
  Sex: Male

DRUGS (8)
  1. SANDIMMUNE [Suspect]
     Active Substance: CYCLOSPORINE
     Indication: PROPHYLAXIS AGAINST GRAFT VERSUS HOST DISEASE
     Dosage: 1.5 MG/KG
     Route: 041
     Dates: start: 20140207, end: 20140207
  2. SANDIMMUNE [Suspect]
     Active Substance: CYCLOSPORINE
     Dosage: 0.75 MG/KG
     Route: 041
     Dates: start: 20130208, end: 20140208
  3. BUSULFAN [Concomitant]
     Active Substance: BUSULFAN
     Indication: CORD BLOOD TRANSPLANT THERAPY
     Dosage: 0.5 MG/KG
     Route: 065
  4. ETOPOSIDE. [Concomitant]
     Active Substance: ETOPOSIDE
     Indication: CORD BLOOD TRANSPLANT THERAPY
     Dosage: 63 MG/KG
     Route: 065
  5. CYCLOPHOSPHAMIDE. [Concomitant]
     Active Substance: CYCLOPHOSPHAMIDE
     Indication: CORD BLOOD TRANSPLANT THERAPY
     Dosage: 63 MG/KG
     Route: 065
  6. METHOTREXATE [Concomitant]
     Active Substance: METHOTREXATE
     Indication: PROPHYLAXIS AGAINST GRAFT VERSUS HOST DISEASE
     Route: 048
  7. BUSULFAN [Concomitant]
     Active Substance: BUSULFAN
     Dosage: 0.75 MG/KG
     Route: 042
  8. SANDIMMUNE [Suspect]
     Active Substance: CYCLOSPORINE
     Indication: TRANSPLANT
     Dosage: 3 MG/KG, QD
     Route: 041
     Dates: start: 20131209, end: 20140206

REACTIONS (7)
  - Circulatory collapse [Recovered/Resolved]
  - Respiratory failure [Recovered/Resolved]
  - Thrombotic microangiopathy [Recovered/Resolved]
  - Hypoxia [Recovered/Resolved]
  - Affective disorder [Unknown]
  - Pulmonary vascular disorder [Recovered/Resolved]
  - Pulmonary hypertension [Recovered/Resolved]

NARRATIVE: CASE EVENT DATE: 20140206
